FAERS Safety Report 6505502-X (Version None)
Quarter: 2009Q4

REPORT INFORMATION
  Report Type: 
  Country: None (occurrence: None)
  Receive Date: 20091218
  Receipt Date: 20091207
  Transmission Date: 20100525
  Serious: Yes (Life-Threatening, Hospitalization)
  Sender: FDA-Public Use
  Company Number: NL-PFIZER INC-2009306985

PATIENT
  Age: 36 Year
  Sex: Male
  Weight: 92 kg

DRUGS (1)
  1. ZYVOXID [Suspect]
     Indication: CATHETER SITE INFLAMMATION
     Dosage: UNK
     Dates: start: 20050101, end: 20050101

REACTIONS (1)
  - HEPATIC FAILURE [None]
